FAERS Safety Report 10031503 (Version 2)
Quarter: 2014Q1

REPORT INFORMATION
  Report Type: Spontaneous
  Country: FR (occurrence: FR)
  Receive Date: 20140324
  Receipt Date: 20140328
  Transmission Date: 20141002
  Serious: Yes (Hospitalization)
  Sender: FDA-Public Use
  Company Number: FR-ROCHE-1370303

PATIENT
  Age: 79 Year
  Sex: Female

DRUGS (5)
  1. LUCENTIS [Suspect]
     Indication: CATARACT OPERATION
     Route: 050
     Dates: start: 20140225, end: 20140225
  2. INDOCOLLYRE [Suspect]
     Indication: CATARACT OPERATION
     Dosage: EYE DROPS
     Route: 047
     Dates: start: 20140225, end: 20140309
  3. COLCHIMAX [Concomitant]
     Indication: PERICARDITIS
  4. KARDEGIC [Concomitant]
  5. TOBRADEX [Concomitant]

REACTIONS (3)
  - Angioedema [Recovered/Resolved]
  - Urticaria [Recovered/Resolved]
  - Off label use [Unknown]
